FAERS Safety Report 11932174 (Version 2)
Quarter: 2016Q1

REPORT INFORMATION
  Report Type: Spontaneous
  Country: US (occurrence: US)
  Receive Date: 20160120
  Receipt Date: 20160121
  Transmission Date: 20160526
  Serious: No
  Sender: FDA-Public Use
  Company Number: US-009507513-1601USA005060

PATIENT
  Sex: Female
  Weight: 66.58 kg

DRUGS (2)
  1. NEXPLANON [Suspect]
     Active Substance: ETONOGESTREL
     Dosage: SINGLE ROD IMPLANT, UNK
     Route: 059
     Dates: start: 20160112
  2. NEXPLANON [Suspect]
     Active Substance: ETONOGESTREL
     Dosage: SINGLE ROD IMPLANT, UNK
     Route: 059
     Dates: start: 20150806, end: 20160112

REACTIONS (1)
  - Device breakage [Recovered/Resolved]
